FAERS Safety Report 6782940-1 (Version None)
Quarter: 2010Q2

REPORT INFORMATION
  Report Type: 
  Country: None (occurrence: None)
  Receive Date: 20100622
  Receipt Date: 20100610
  Transmission Date: 20101027
  Serious: Yes (Hospitalization)
  Sender: FDA-Public Use
  Company Number: CA-JNJFOC-20100603976

PATIENT
  Sex: Female

DRUGS (2)
  1. REMICADE [Suspect]
     Indication: COLITIS ULCERATIVE
     Route: 042
  2. CIPRO [Concomitant]
     Indication: INFECTION

REACTIONS (5)
  - HYSTERECTOMY [None]
  - INFECTION [None]
  - PROCEDURAL COMPLICATION [None]
  - URETERAL STENT INSERTION [None]
  - URETERIC INJURY [None]
